FAERS Safety Report 5923767-X (Version None)
Quarter: 2008Q4

REPORT INFORMATION
  Report Type: 
  Country: None (occurrence: None)
  Receive Date: 20081020
  Receipt Date: 20081009
  Transmission Date: 20090506
  Serious: Yes (Hospitalization)
  Sender: FDA-Public Use
  Company Number: JP-ASTRAZENECA-2008AP06084

PATIENT
  Age: 72 Year
  Sex: Male
  Weight: 47 kg

DRUGS (10)
  1. OMEPRAZOLE [Suspect]
     Indication: REFLUX OESOPHAGITIS
     Route: 048
     Dates: start: 20080703, end: 20080731
  2. CONIEL [Concomitant]
     Indication: HYPERTENSION
     Route: 048
     Dates: start: 19990519
  3. ACECOL [Concomitant]
     Indication: HYPERTENSION
     Route: 048
     Dates: start: 20080726, end: 20080801
  4. SELBEX [Concomitant]
     Indication: PROPHYLAXIS AGAINST GASTROINTESTINAL ULCER
     Route: 048
     Dates: start: 20001018
  5. CARDENALIN [Concomitant]
     Indication: HYPERTENSION
     Route: 048
     Dates: start: 20011031, end: 20080731
  6. ZYLORIC [Concomitant]
     Indication: HYPERURICAEMIA
     Route: 048
     Dates: start: 20030416
  7. CALTAN [Concomitant]
     Indication: HYPERPHOSPHATAEMIA
     Route: 048
     Dates: start: 20070308
  8. ARGAMATE [Concomitant]
     Indication: HYPERKALAEMIA
     Route: 048
     Dates: start: 20070308, end: 20080731
  9. ALFAROL [Concomitant]
     Indication: HYPOCALCAEMIA
     Route: 048
     Dates: start: 20070621
  10. KREMEZIN [Concomitant]
     Indication: RENAL FAILURE CHRONIC
     Route: 048
     Dates: start: 20080207, end: 20080731

REACTIONS (3)
  - ACIDOSIS [None]
  - ANAEMIA [None]
  - RENAL FAILURE ACUTE [None]
